APPROVED DRUG PRODUCT: ACYCLOVIR
Active Ingredient: ACYCLOVIR
Strength: 400MG
Dosage Form/Route: TABLET;ORAL
Application: A074556 | Product #002 | TE Code: AB
Applicant: TEVA PHARMACEUTICALS USA INC
Approved: Apr 22, 1997 | RLD: No | RS: No | Type: RX